FAERS Safety Report 8529606-5 (Version None)
Quarter: 2012Q3

REPORT INFORMATION
  Report Type: 
  Country: None (occurrence: None)
  Receive Date: 20120710
  Receipt Date: 20120628
  Transmission Date: 20120928
  Serious: Yes (Hospitalization)
  Sender: FDA-Public Use
  Company Number: AUR-APL-2012-02826

PATIENT
  Age: 54 Year
  Sex: Male
  Weight: 86 kg

DRUGS (11)
  1. ITRACONAZOLE [Concomitant]
  2. SIMVASTATIN [Suspect]
     Indication: BLOOD CHOLESTEROL INCREASED
     Dosage: 40 MG, ORAL
     Route: 048
     Dates: start: 20120515, end: 20120515
  3. CYCLOSPORINE [Concomitant]
  4. OMEPRAZOLE [Concomitant]
  5. PREDNISOLONE [Concomitant]
  6. ACYCLOVIR [Concomitant]
  7. MYCOPHENOLATE MOFETIL [Concomitant]
  8. TRIMETHOPRIM + SULFAMETHOXAZOLE [Concomitant]
  9. QUININE SULFATE [Concomitant]
  10. DILTIAZEM HYDROCHLORIDE [Concomitant]
  11. PENICILLIN V [Concomitant]

REACTIONS (1)
  - RHABDOMYOLYSIS [None]
